FAERS Safety Report 9662230 (Version 1)
Quarter: 2013Q4

REPORT INFORMATION
  Report Type: Spontaneous
  Country: US (occurrence: US)
  Receive Date: 20131031
  Receipt Date: 20131031
  Transmission Date: 20140711
  Serious: No
  Sender: FDA-Public Use
  Company Number: US-PURDUE-USA-2011-0070332

PATIENT
  Sex: Female

DRUGS (3)
  1. OXYCONTIN (NDA 22-272) [Suspect]
     Indication: PAIN
     Dosage: 80 MG, TID
     Route: 048
     Dates: start: 20110604, end: 20110604
  2. OXYCODONE HYDROCHLORIDE (SIMILAR TO NDA 22-272) [Concomitant]
     Indication: BREAKTHROUGH PAIN
     Dosage: 30 MG, Q3H PRN
     Route: 048
  3. ZOFRAN                             /00955301/ [Concomitant]
     Indication: NAUSEA
     Dosage: UNK UNK, UNK

REACTIONS (5)
  - Dyspnoea [Recovered/Resolved]
  - Headache [Recovered/Resolved]
  - Malaise [Recovered/Resolved]
  - Nausea [Recovered/Resolved]
  - Drug effect increased [Recovered/Resolved]
